FAERS Safety Report 20547443 (Version 2)
Quarter: 2022Q3

REPORT INFORMATION
  Report Type: Spontaneous
  Country: US (occurrence: None)
  Receive Date: 20220303
  Receipt Date: 20220816
  Transmission Date: 20221026
  Serious: Yes (Other)
  Sender: FDA-Public Use
  Company Number: 2022A086063

PATIENT
  Age: 60 Year
  Sex: Female
  Weight: 93 kg

DRUGS (74)
  1. NEXIUM 24HR [Suspect]
     Active Substance: ESOMEPRAZOLE MAGNESIUM
     Indication: Gastrooesophageal reflux disease
     Route: 048
     Dates: start: 2004, end: 2019
  2. NEXIUM 24HR [Suspect]
     Active Substance: ESOMEPRAZOLE MAGNESIUM
     Indication: Gastrooesophageal reflux disease
     Route: 048
     Dates: start: 2004, end: 2019
  3. NEXIUM 24HR [Suspect]
     Active Substance: ESOMEPRAZOLE MAGNESIUM
     Indication: Gastrooesophageal reflux disease
     Route: 048
     Dates: start: 2014, end: 20191231
  4. NEXIUM 24HR [Suspect]
     Active Substance: ESOMEPRAZOLE MAGNESIUM
     Indication: Gastrooesophageal reflux disease
     Route: 048
     Dates: start: 2014, end: 20191231
  5. PRILOSEC [Suspect]
     Active Substance: OMEPRAZOLE MAGNESIUM
     Indication: Gastrooesophageal reflux disease
     Route: 048
     Dates: start: 2004, end: 2019
  6. PRILOSEC [Suspect]
     Active Substance: OMEPRAZOLE MAGNESIUM
     Indication: Gastrooesophageal reflux disease
     Route: 048
     Dates: start: 2004, end: 2019
  7. PRILOSEC [Suspect]
     Active Substance: OMEPRAZOLE MAGNESIUM
     Indication: Gastrooesophageal reflux disease
     Dosage: GENERIC
     Route: 048
     Dates: start: 20130526
  8. PRILOSEC [Suspect]
     Active Substance: OMEPRAZOLE MAGNESIUM
     Indication: Gastrooesophageal reflux disease
     Dosage: GENERIC
     Route: 048
     Dates: start: 20130526
  9. PRILOSEC [Suspect]
     Active Substance: OMEPRAZOLE MAGNESIUM
     Indication: Gastrooesophageal reflux disease
     Dosage: GENERIC
     Route: 048
     Dates: start: 20140702
  10. PRILOSEC [Suspect]
     Active Substance: OMEPRAZOLE MAGNESIUM
     Indication: Gastrooesophageal reflux disease
     Dosage: GENERIC
     Route: 048
     Dates: start: 20140702
  11. PRILOSEC [Suspect]
     Active Substance: OMEPRAZOLE MAGNESIUM
     Indication: Gastrooesophageal reflux disease
     Route: 048
     Dates: start: 20040101, end: 20191231
  12. PRILOSEC [Suspect]
     Active Substance: OMEPRAZOLE MAGNESIUM
     Indication: Gastrooesophageal reflux disease
     Route: 048
     Dates: start: 20040101, end: 20191231
  13. PRILOSEC [Suspect]
     Active Substance: OMEPRAZOLE MAGNESIUM
     Indication: Gastrooesophageal reflux disease
     Dosage: GENERIC
     Route: 065
     Dates: start: 2012, end: 20191231
  14. PRILOSEC [Suspect]
     Active Substance: OMEPRAZOLE MAGNESIUM
     Indication: Gastrooesophageal reflux disease
     Dosage: GENERIC
     Route: 065
     Dates: start: 2012, end: 20191231
  15. PRILOSEC OTC [Suspect]
     Active Substance: OMEPRAZOLE MAGNESIUM
     Indication: Gastrooesophageal reflux disease
     Route: 048
     Dates: start: 2004, end: 2019
  16. PRILOSEC OTC [Suspect]
     Active Substance: OMEPRAZOLE MAGNESIUM
     Indication: Gastrooesophageal reflux disease
     Route: 048
     Dates: start: 2004, end: 2019
  17. PRILOSEC OTC [Suspect]
     Active Substance: OMEPRAZOLE MAGNESIUM
     Indication: Gastrooesophageal reflux disease
     Route: 048
     Dates: start: 20040101, end: 20191231
  18. PRILOSEC OTC [Suspect]
     Active Substance: OMEPRAZOLE MAGNESIUM
     Indication: Gastrooesophageal reflux disease
     Route: 048
     Dates: start: 20040101, end: 20191231
  19. QUINAPRIL [Concomitant]
     Active Substance: QUINAPRIL
     Indication: Blood pressure abnormal
     Route: 065
     Dates: start: 201201
  20. QUINAPRIL [Concomitant]
     Active Substance: QUINAPRIL
     Indication: Blood pressure abnormal
     Route: 065
     Dates: start: 201204
  21. CYCLOBENZAPRINE [Concomitant]
     Active Substance: CYCLOBENZAPRINE
  22. TRAMADOL [Concomitant]
     Active Substance: TRAMADOL
     Indication: Pain
     Route: 065
     Dates: start: 201206
  23. TRAMADOL [Concomitant]
     Active Substance: TRAMADOL
     Indication: Pain
     Route: 065
     Dates: start: 201207
  24. FLUTICASONE [Concomitant]
     Active Substance: FLUTICASONE
  25. OXYCODONE AND ACETAMINOPHEN [Concomitant]
     Active Substance: ACETAMINOPHEN\OXYCODONE HYDROCHLORIDE
  26. PRAVASTATIN [Concomitant]
     Active Substance: PRAVASTATIN
     Indication: Blood cholesterol abnormal
     Route: 065
     Dates: start: 201401
  27. METFORMIN [Concomitant]
     Active Substance: METFORMIN HYDROCHLORIDE
  28. DULOXETINE [Concomitant]
     Active Substance: DULOXETINE
  29. LOSARTAN [Concomitant]
     Active Substance: LOSARTAN
     Indication: Blood pressure abnormal
     Route: 065
     Dates: start: 201401
  30. LOSARTAN [Concomitant]
     Active Substance: LOSARTAN
     Indication: Blood pressure abnormal
     Route: 065
     Dates: start: 201803
  31. PROAIR HFA [Concomitant]
     Active Substance: ALBUTEROL SULFATE
  32. GABAPENTIN [Concomitant]
     Active Substance: GABAPENTIN
  33. HYDROXYZINE [Concomitant]
     Active Substance: HYDROXYZINE HYDROCHLORIDE
  34. CIPROFLOXACIN [Concomitant]
     Active Substance: CIPROFLOXACIN
     Indication: Infection
     Route: 065
     Dates: start: 201307
  35. METRONIDAZOLE [Concomitant]
     Active Substance: METRONIDAZOLE
  36. MONTELUKAST [Concomitant]
     Active Substance: MONTELUKAST SODIUM
  37. PREDNISONE [Concomitant]
     Active Substance: PREDNISONE
  38. BUPROPION [Concomitant]
     Active Substance: BUPROPION
  39. PERCOCET [Concomitant]
     Active Substance: ACETAMINOPHEN\OXYCODONE HYDROCHLORIDE
  40. RANITIDINE [Concomitant]
     Active Substance: RANITIDINE
     Route: 065
     Dates: start: 201401
  41. RANITIDINE [Concomitant]
     Active Substance: RANITIDINE
     Route: 065
     Dates: start: 201908
  42. ROSUVASTATIN [Concomitant]
     Active Substance: ROSUVASTATIN
     Indication: Blood cholesterol abnormal
     Route: 065
     Dates: start: 201401
  43. ROSUVASTATIN [Concomitant]
     Active Substance: ROSUVASTATIN
     Indication: Blood cholesterol abnormal
     Route: 065
     Dates: start: 201907
  44. TRIAMCINOLONE [Concomitant]
     Active Substance: TRIAMCINOLONE
  45. VENLAFAXINE [Concomitant]
     Active Substance: VENLAFAXINE HYDROCHLORIDE
  46. TRULICITY [Concomitant]
     Active Substance: DULAGLUTIDE
  47. EZETIMIBE [Concomitant]
     Active Substance: EZETIMIBE
  48. ADVAIR HFA [Concomitant]
     Active Substance: FLUTICASONE PROPIONATE\SALMETEROL XINAFOATE
  49. MOVANTIK [Concomitant]
     Active Substance: NALOXEGOL OXALATE
  50. DOXYCYCLINE [Concomitant]
     Active Substance: DOXYCYCLINE
     Indication: Infection
     Route: 065
     Dates: start: 201401
  51. DOXYCYCLINE [Concomitant]
     Active Substance: DOXYCYCLINE
     Indication: Infection
     Route: 065
     Dates: start: 202002
  52. LEVOFLOXACIN [Concomitant]
     Active Substance: LEVOFLOXACIN
     Indication: Infection
     Route: 065
     Dates: start: 201401
  53. SULFAMETHOXAZOLE\TRIMETHOPRIM [Concomitant]
     Active Substance: SULFAMETHOXAZOLE\TRIMETHOPRIM
     Indication: Infection
     Route: 065
     Dates: start: 201911
  54. ACCUPRIL [Concomitant]
     Active Substance: QUINAPRIL HYDROCHLORIDE
     Indication: Blood pressure abnormal
     Route: 065
     Dates: start: 201401
  55. ACCUPRIL [Concomitant]
     Active Substance: QUINAPRIL HYDROCHLORIDE
     Indication: Blood pressure abnormal
     Route: 065
     Dates: start: 201803
  56. FUROSEMIDE [Concomitant]
     Active Substance: FUROSEMIDE
     Indication: Renal injury
     Route: 065
     Dates: start: 201308
  57. HYDROCHLOROTHIAZIDE [Concomitant]
     Active Substance: HYDROCHLOROTHIAZIDE
     Indication: Blood pressure abnormal
     Route: 065
     Dates: start: 201703
  58. HYDROCHLOROTHIAZIDE [Concomitant]
     Active Substance: HYDROCHLOROTHIAZIDE
     Indication: Blood pressure abnormal
     Route: 065
     Dates: start: 201707
  59. AMITRIPTYLINE [Concomitant]
     Active Substance: AMITRIPTYLINE
     Indication: Depression
     Route: 065
     Dates: start: 201305
  60. AMITRIPTYLINE [Concomitant]
     Active Substance: AMITRIPTYLINE
     Indication: Anxiety
     Route: 065
     Dates: start: 201305
  61. AMITRIPTYLINE [Concomitant]
     Active Substance: AMITRIPTYLINE
     Indication: Depression
     Route: 065
     Dates: start: 201308
  62. AMITRIPTYLINE [Concomitant]
     Active Substance: AMITRIPTYLINE
     Indication: Anxiety
     Route: 065
     Dates: start: 201308
  63. CARBAMAZEPINE [Concomitant]
     Active Substance: CARBAMAZEPINE
     Indication: Depression
     Route: 065
     Dates: start: 201909
  64. CARBAMAZEPINE [Concomitant]
     Active Substance: CARBAMAZEPINE
     Indication: Anxiety
     Route: 065
     Dates: start: 201909
  65. CARBAMAZEPINE [Concomitant]
     Active Substance: CARBAMAZEPINE
     Indication: Depression
     Route: 065
     Dates: start: 201910
  66. CARBAMAZEPINE [Concomitant]
     Active Substance: CARBAMAZEPINE
     Indication: Anxiety
     Route: 065
     Dates: start: 201910
  67. PHENYTOIN [Concomitant]
     Active Substance: PHENYTOIN
     Indication: Anxiety
     Route: 065
     Dates: start: 201909
  68. PHENYTOIN [Concomitant]
     Active Substance: PHENYTOIN
     Indication: Depression
     Route: 065
     Dates: start: 201909
  69. PHENYTOIN [Concomitant]
     Active Substance: PHENYTOIN
     Indication: Anxiety
     Route: 065
     Dates: start: 201910
  70. PHENYTOIN [Concomitant]
     Active Substance: PHENYTOIN
     Indication: Depression
     Route: 065
     Dates: start: 201910
  71. ACETAMINOPHEN [Concomitant]
     Active Substance: ACETAMINOPHEN
     Indication: Pain
  72. IBUPROFEN [Concomitant]
     Active Substance: IBUPROFEN
     Indication: Pain
  73. FAMOTIDINE [Concomitant]
     Active Substance: FAMOTIDINE
     Route: 065
     Dates: start: 201307
  74. FAMOTIDINE [Concomitant]
     Active Substance: FAMOTIDINE
     Route: 065
     Dates: start: 201401

REACTIONS (2)
  - Chronic kidney disease [Not Recovered/Not Resolved]
  - Gastrooesophageal reflux disease [Not Recovered/Not Resolved]

NARRATIVE: CASE EVENT DATE: 20190101
